FAERS Safety Report 6569606-8 (Version None)
Quarter: 2010Q1

REPORT INFORMATION
  Report Type: 
  Country: None (occurrence: None)
  Receive Date: 20100203
  Receipt Date: 20100203
  Transmission Date: 20100710
  Serious: Yes (Life-Threatening, Other)
  Sender: FDA-Public Use
  Company Number: None

PATIENT
  Age: 51 Month
  Sex: Male
  Weight: 56.6996 kg

DRUGS (2)
  1. ZICAM COLD REMEDY NASAL GEL MATRIXX INITIATIVES [Suspect]
     Indication: AGEUSIA
     Dosage: INSTRUCTIONS 3 TIMES A DAY NASAL
     Route: 045
     Dates: start: 20090426, end: 20090429
  2. ZICAM COLD REMEDY NASAL GEL MATRIXX INITIATIVES [Suspect]
     Indication: ANOSMIA
     Dosage: INSTRUCTIONS 3 TIMES A DAY NASAL
     Route: 045
     Dates: start: 20090426, end: 20090429

REACTIONS (2)
  - AGEUSIA [None]
  - ANOSMIA [None]
